FAERS Safety Report 5524804-7 (Version None)
Quarter: 2007Q4

REPORT INFORMATION
  Report Type: 
  Country: None (occurrence: None)
  Receive Date: 20071116
  Receipt Date: 20071105
  Transmission Date: 20080405
  Serious: Yes (Hospitalization)
  Sender: FDA-Public Use
  Company Number: B0474520A

PATIENT
  Age: 79 Year
  Sex: Female

DRUGS (2)
  1. VALTREX [Suspect]
     Indication: HERPES ZOSTER
     Dosage: 6 GRAM(S) / PER DAY / ORAL
     Route: 048
  2. LOXOPROFEN [Concomitant]

REACTIONS (7)
  - ABNORMAL BEHAVIOUR [None]
  - BALANCE DISORDER [None]
  - DYSARTHRIA [None]
  - HALLUCINATION [None]
  - KIDNEY ENLARGEMENT [None]
  - RENAL FAILURE ACUTE [None]
  - TOXIC ENCEPHALOPATHY [None]
